FAERS Safety Report 19298892 (Version 2)
Quarter: 2021Q2

REPORT INFORMATION
  Report Type: Spontaneous
  Country: US (occurrence: US)
  Receive Date: 20210525
  Receipt Date: 20210623
  Transmission Date: 20210717
  Serious: No
  Sender: FDA-Public Use
  Company Number: US-JNJFOC-20210531904

PATIENT
  Age: 57 Year
  Sex: Female
  Weight: 45.4 kg

DRUGS (2)
  1. STELARA [Suspect]
     Active Substance: USTEKINUMAB
  2. STELARA [Suspect]
     Active Substance: USTEKINUMAB
     Indication: CROHN^S DISEASE
     Route: 058

REACTIONS (4)
  - Underdose [Unknown]
  - Weight decreased [Unknown]
  - Drug delivery system malfunction [Unknown]
  - Self-medication [Unknown]

NARRATIVE: CASE EVENT DATE: 20210516
